FAERS Safety Report 11221512 (Version 2)
Quarter: 2015Q3

REPORT INFORMATION
  Report Type: Spontaneous
  Country: IT (occurrence: IT)
  Receive Date: 20150626
  Receipt Date: 20150807
  Transmission Date: 20151125
  Serious: Yes (Hospitalization)
  Sender: FDA-Public Use
  Company Number: IT-ACTAVIS-2015-12491

PATIENT
  Age: 58 Year
  Sex: Male

DRUGS (3)
  1. NORFLOXACIN (UNKNOWN) [Suspect]
     Active Substance: NORFLOXACIN
     Indication: PROSTATITIS
     Dosage: 400 MG, DAILY
     Route: 048
     Dates: start: 20141105, end: 20141108
  2. IBUPROFEN (UNKNOWN) [Suspect]
     Active Substance: IBUPROFEN
     Indication: INFLAMMATION
     Dosage: 2 G, DAILY
     Route: 048
     Dates: start: 20141112, end: 20141115
  3. CIPROXIN                           /00697202/ [Suspect]
     Active Substance: CIPROFLOXACIN
     Indication: PROSTATITIS
     Dosage: 500 MG, DAILY
     Route: 048
     Dates: start: 20141101, end: 20141105

REACTIONS (2)
  - Abdominal pain [Unknown]
  - Retching [Unknown]

NARRATIVE: CASE EVENT DATE: 20141115
